FAERS Safety Report 7730166-7 (Version None)
Quarter: 2011Q3

REPORT INFORMATION
  Report Type: 
  Country: None (occurrence: None)
  Receive Date: 20110906
  Receipt Date: 20110831
  Transmission Date: 20111222
  Serious: Yes (Hospitalization)
  Sender: FDA-Public Use
  Company Number: PHHY2011DE77276

PATIENT
  Age: 73 Year
  Sex: Female

DRUGS (7)
  1. THALIDOMIDE [Concomitant]
  2. ZOMETA [Suspect]
     Indication: PLASMACYTOMA
     Dosage: MONTHLY
  3. BORTEZOMIB [Concomitant]
  4. OTHER CHEMOTHERAPEUTICS [Concomitant]
  5. SEROQUEL [Concomitant]
  6. AMLODIPINE [Concomitant]
  7. LORAZEPAM [Concomitant]

REACTIONS (4)
  - SENSORY DISTURBANCE [None]
  - HYPOAESTHESIA [None]
  - POLYNEUROPATHY [None]
  - GAIT DISTURBANCE [None]
